FAERS Safety Report 7128403-5 (Version None)
Quarter: 2010Q4

REPORT INFORMATION
  Report Type: 
  Country: None (occurrence: None)
  Receive Date: 20101130
  Receipt Date: 20101118
  Transmission Date: 20110411
  Serious: Yes (Other)
  Sender: FDA-Public Use
  Company Number: PHHY2010DE66645

PATIENT
  Age: 71 Year
  Sex: Female

DRUGS (5)
  1. RASILEZ [Suspect]
     Indication: HYPERTENSION
     Dosage: 1 DF, QD
     Dates: start: 20100901, end: 20101002
  2. MAGNESIUM [Concomitant]
  3. CALCIUM [Concomitant]
  4. VITAMIN K TAB [Concomitant]
  5. ENTOCORT EC [Concomitant]
     Dosage: 06 MG, UNK

REACTIONS (8)
  - CONDITION AGGRAVATED [None]
  - MOVEMENT DISORDER [None]
  - MUSCLE DISORDER [None]
  - MUSCLE SPASMS [None]
  - MYALGIA [None]
  - PARAESTHESIA [None]
  - SOCIAL PHOBIA [None]
  - SPINAL COLUMN STENOSIS [None]
